FAERS Safety Report 23079668 (Version 3)
Quarter: 2023Q4

REPORT INFORMATION
  Report Type: Report from Study
  Country: GR (occurrence: GR)
  Receive Date: 20231018
  Receipt Date: 20231101
  Transmission Date: 20240110
  Serious: Yes (Other)
  Sender: FDA-Public Use
  Company Number: GR-BAXTER-2023BAX032935

PATIENT
  Age: 66 Year
  Sex: Male
  Weight: 72 kg

DRUGS (13)
  1. CALCIUM CHLORIDE\DEXTROSE\MAGNESIUM CHLORIDE\SODIUM CHLORIDE [Suspect]
     Active Substance: CALCIUM CHLORIDE\DEXTROSE\MAGNESIUM CHLORIDE\SODIUM CHLORIDE
     Indication: Peritoneal dialysis
     Dosage: 2 BAG OF 5 LITERS QD (ONCE A DAY) (CLEARFLEX)
     Route: 033
  2. CALCIUM CHLORIDE\DEXTROSE\MAGNESIUM CHLORIDE\SODIUM CHLORIDE [Suspect]
     Active Substance: CALCIUM CHLORIDE\DEXTROSE\MAGNESIUM CHLORIDE\SODIUM CHLORIDE
     Dosage: 1 BAG OF 5 LITERS QD (ONCE A DAY) (CLEARFLEX)
     Route: 033
  3. CALCIUM CHLORIDE\DEXTROSE\MAGNESIUM CHLORIDE\SODIUM CHLORIDE [Suspect]
     Active Substance: CALCIUM CHLORIDE\DEXTROSE\MAGNESIUM CHLORIDE\SODIUM CHLORIDE
     Indication: Peritoneal dialysis
     Dosage: 1 BAG OF 5 LITERS QD (ONCE A DAY)
     Route: 033
  4. EXTRANEAL [Suspect]
     Active Substance: CALCIUM CHLORIDE\ICODEXTRIN\MAGNESIUM CHLORIDE\SODIUM CHLORIDE\SODIUM LACTATE
     Indication: Peritoneal dialysis
     Dosage: 1 LITER, QD (ONCE A DAY)
     Route: 033
  5. UNSPECIFIED INGREDIENT [Suspect]
     Active Substance: UNSPECIFIED INGREDIENT
     Route: 065
  6. CLONIDINE [Concomitant]
     Active Substance: CLONIDINE
     Indication: Hypertension
     Dosage: 2 TABLETS
     Route: 048
  7. HUMALOG [Concomitant]
     Active Substance: INSULIN LISPRO
     Indication: Diabetes mellitus
     Dosage: 25 UNITS QD (ONCE A DAY)
     Route: 065
  8. SEVELAMER [Concomitant]
     Active Substance: SEVELAMER
     Indication: Renal failure
     Dosage: 2 PILLS BEFORE MEAL
     Route: 048
  9. ALLOPURINOL [Concomitant]
     Active Substance: ALLOPURINOL
     Indication: Blood uric acid
     Route: 065
  10. SILODOSIN [Concomitant]
     Active Substance: SILODOSIN
     Indication: Prostatic disorder
     Dosage: UNK
     Route: 065
  11. CARVEDILOL [Concomitant]
     Active Substance: CARVEDILOL
     Indication: Heart rate
     Dosage: 1 TABLET QD (ONCE A DAY)
     Route: 065
  12. CLOPIDOGREL BISULFATE [Concomitant]
     Active Substance: CLOPIDOGREL BISULFATE
     Dosage: 1 QD (ONCE A DAY)
     Route: 065
  13. ATORVASTATIN CALCIUM [Concomitant]
     Active Substance: ATORVASTATIN CALCIUM
     Indication: Blood cholesterol
     Dosage: 1 TABLET PER DAY
     Route: 065

REACTIONS (4)
  - Hypoglycaemia [Recovered/Resolved]
  - Hyperhidrosis [Unknown]
  - Tremor [Unknown]
  - Hyperglycaemia [Unknown]
